FAERS Safety Report 4693240-8 (Version None)
Quarter: 2005Q2

REPORT INFORMATION
  Report Type: 
  Country: None (occurrence: None)
  Receive Date: 20050311
  Receipt Date: 20050311
  Transmission Date: 20051028
  Serious: No
  Sender: FDA-Public Use
  Company Number: None

PATIENT
  Age: 43 Year
  Sex: Female

DRUGS (6)
  1. NEXIUM [Suspect]
     Dosage: 40 MG /D
  2. BEXTRA [Concomitant]
  3. LORAZEPAM [Concomitant]
  4. REMERON [Concomitant]
  5. NORVASC [Concomitant]
  6. EVISTA [Concomitant]

REACTIONS (2)
  - DISCOMFORT [None]
  - FREQUENT BOWEL MOVEMENTS [None]
